FAERS Safety Report 19699751 (Version 1)
Quarter: 2021Q3

REPORT INFORMATION
  Report Type: Spontaneous
  Country: CN (occurrence: CN)
  Receive Date: 20210813
  Receipt Date: 20210813
  Transmission Date: 20211014
  Serious: Yes (Hospitalization, Other)
  Sender: FDA-Public Use
  Company Number: CN-009507513-2108CHN002757

PATIENT
  Age: 78 Year
  Sex: Male
  Weight: 40 kg

DRUGS (4)
  1. SODIUM CHLORIDE. [Concomitant]
     Active Substance: SODIUM CHLORIDE
     Dosage: 150 MILLILITER, INDICATION: SOLVENT
     Route: 041
     Dates: start: 20210710, end: 20210710
  2. KEYTRUDA [Suspect]
     Active Substance: PEMBROLIZUMAB
     Indication: SQUAMOUS CELL CARCINOMA OF LUNG
     Dosage: 200 MILLIGRAM
     Route: 041
     Dates: start: 20210709, end: 20210709
  3. PACLITAXEL FOR INJECTION (ALBUMIN BOUND) [Suspect]
     Active Substance: PACLITAXEL
     Indication: SQUAMOUS CELL CARCINOMA OF LUNG
     Dosage: 0.35 GRAM
     Route: 041
     Dates: start: 20210710, end: 20210710
  4. SODIUM CHLORIDE. [Concomitant]
     Active Substance: SODIUM CHLORIDE
     Dosage: 100 MILLILITER, INDICATION: SOLVENT
     Route: 041
     Dates: start: 20210709, end: 20210709

REACTIONS (1)
  - Renal failure [Recovering/Resolving]

NARRATIVE: CASE EVENT DATE: 20210714
